FAERS Safety Report 15309691 (Version 1)
Quarter: 2018Q3

REPORT INFORMATION
  Report Type: Spontaneous
  Country: US (occurrence: US)
  Receive Date: 20180812
  Receipt Date: 20180812
  Transmission Date: 20181010
  Serious: Yes (Life-Threatening, Disabling, Other)
  Sender: FDA-Public Use
  Company Number: None

PATIENT
  Age: 54 Year
  Sex: Female
  Weight: 94.5 kg

DRUGS (1)
  1. LAMOTRAGINE [Suspect]
     Active Substance: LAMOTRIGINE
     Indication: BIPOLAR DISORDER
     Dosage: ?          QUANTITY:240 TABLET(S);?
     Route: 048
     Dates: start: 20161201

REACTIONS (8)
  - Depression [None]
  - Suicidal ideation [None]
  - Product quality issue [None]
  - Irritability [None]
  - Hostility [None]
  - Withdrawal syndrome [None]
  - Anxiety [None]
  - Anger [None]

NARRATIVE: CASE EVENT DATE: 20180101
